FAERS Safety Report 24987453 (Version 2)
Quarter: 2025Q1

REPORT INFORMATION
  Report Type: Spontaneous
  Country: ES (occurrence: ES)
  Receive Date: 20250219
  Receipt Date: 20250225
  Transmission Date: 20250409
  Serious: Yes (Other)
  Sender: OTSUKA
  Company Number: None

PATIENT
  Age: 30 Year
  Sex: Male
  Weight: 67 kg

DRUGS (3)
  1. BREXPIPRAZOLE [Suspect]
     Active Substance: BREXPIPRAZOLE
     Indication: Schizophrenia
     Dosage: 4 MG, QD
     Route: 048
     Dates: start: 20250101
  2. RIVOTRIL [Suspect]
     Active Substance: CLONAZEPAM
     Indication: Insomnia
     Dosage: 0.75 MG, QD (BETWEEN 0.5 AND 1 MG)
     Route: 048
     Dates: start: 20250101
  3. OLANZAPINA ALTER [Concomitant]
     Indication: Schizophrenia
     Dosage: 30 MG, QD (20 MG NIGHT AND 10 MG MORNING)
     Route: 048
     Dates: start: 20241201, end: 20250102

REACTIONS (7)
  - Gingival bleeding [Not Recovered/Not Resolved]
  - Amnesia [Unknown]
  - Vision blurred [Not Recovered/Not Resolved]
  - Dizziness postural [Not Recovered/Not Resolved]
  - Tremor [Not Recovered/Not Resolved]
  - Akathisia [Not Recovered/Not Resolved]
  - Somnolence [Not Recovered/Not Resolved]

NARRATIVE: CASE EVENT DATE: 20250102
